FAERS Safety Report 5371277-3 (Version None)
Quarter: 2007Q2

REPORT INFORMATION
  Report Type: 
  Country: None (occurrence: None)
  Receive Date: 20070615
  Receipt Date: 20061024
  Transmission Date: 20071010
  Serious: Yes (Other)
  Sender: FDA-Public Use
  Company Number: 200618781US

PATIENT
  Age: 67 Year
  Sex: Female

DRUGS (9)
  1. LANTUS [Suspect]
     Indication: DIABETES MELLITUS INSULIN-DEPENDENT
     Dosage: 6 U HS
     Dates: start: 20020101
  2. OMEPRAZOLE [Concomitant]
  3. ATORVASTATIN CALCIUM (LIPITOR) [Concomitant]
  4. LISINOPRIL [Concomitant]
  5. ACTONEL [Concomitant]
  6. ERGOCALCIFEROL, ASCORBIC ACID, FOLIC ACID, THIAMINE HYDROCHLORIDE, RET [Concomitant]
  7. CALCIUM CHLORIDE [Concomitant]
  8. HUMALOG [Concomitant]
  9. ASPIRIN [Concomitant]

REACTIONS (7)
  - BLOOD GLUCOSE INCREASED [None]
  - FATIGUE [None]
  - HYPOGLYCAEMIA [None]
  - MALAISE [None]
  - SOMNOLENCE [None]
  - THIRST [None]
  - THYROIDITIS [None]
